FAERS Safety Report 7641469-9 (Version None)
Quarter: 2011Q3

REPORT INFORMATION
  Report Type: 
  Country: None (occurrence: None)
  Receive Date: 20110727
  Receipt Date: 20110727
  Transmission Date: 20111222
  Serious: Yes (Death)
  Sender: FDA-Public Use
  Company Number: None

PATIENT
  Age: 54 Year
  Sex: Male

DRUGS (10)
  1. DRONABINOL [Concomitant]
  2. LEVITRA [Concomitant]
  3. ACYCLOVIR [Concomitant]
  4. ATRIPLA [Concomitant]
  5. CYCLOBENZAPRINE [Concomitant]
  6. REVLIMID [Suspect]
     Indication: MULTIPLE MYELOMA
     Dosage: REVLIMID 25MG DAILY X14D/21D ORALLY
     Route: 048
     Dates: start: 20100201, end: 20110401
  7. FENTANYL [Concomitant]
  8. METHYLPHENIDATE [Concomitant]
  9. MORPHINE [Concomitant]
  10. PRAVASTATIN [Concomitant]

REACTIONS (1)
  - PERFORMANCE STATUS DECREASED [None]
